FAERS Safety Report 18221828 (Version 1)
Quarter: 2020Q3

REPORT INFORMATION
  Report Type: Spontaneous
  Country: CN (occurrence: CN)
  Receive Date: 20200902
  Receipt Date: 20200902
  Transmission Date: 20201103
  Serious: Yes (Other)
  Sender: FDA-Public Use
  Company Number: CN-PFIZER INC-2020336461

PATIENT
  Age: 82 Year
  Sex: Male

DRUGS (2)
  1. VIZIMPRO [Suspect]
     Active Substance: DACOMITINIB
     Dosage: 2 DF, DAILY
     Route: 048
  2. VIZIMPRO [Suspect]
     Active Substance: DACOMITINIB
     Dosage: 3 DF, DAILY
     Route: 048

REACTIONS (1)
  - Melaena [Unknown]
